FAERS Safety Report 12656305 (Version 1)
Quarter: 2016Q3

REPORT INFORMATION
  Report Type: Spontaneous
  Country: US (occurrence: US)
  Receive Date: 20160816
  Receipt Date: 20160816
  Transmission Date: 20161109
  Serious: No
  Sender: FDA-Public Use
  Company Number: US-PERRIGO-15US007688

PATIENT
  Age: 41 Year
  Sex: Male
  Weight: 74.83 kg

DRUGS (2)
  1. LORATADINE. [Suspect]
     Active Substance: LORATADINE
     Indication: EAR SWELLING
     Dosage: 10 MG, QD
     Route: 048
     Dates: start: 20150721, end: 20150723
  2. DIPHENHYDRAMINE HYDROCHLORIDE 25 MG 479 [Suspect]
     Active Substance: DIPHENHYDRAMINE HYDROCHLORIDE
     Indication: EAR SWELLING
     Dosage: 50 MG, QD
     Route: 048
     Dates: start: 20150721, end: 20150723

REACTIONS (2)
  - Dizziness [Recovering/Resolving]
  - Off label use [Recovered/Resolved]

NARRATIVE: CASE EVENT DATE: 20150721
